FAERS Safety Report 5173209-X (Version None)
Quarter: 2006Q4

REPORT INFORMATION
  Report Type: 
  Country: None (occurrence: None)
  Receive Date: 20061205
  Receipt Date: 20061115
  Transmission Date: 20070319
  Serious: Yes (Life-Threatening, Hospitalization)
  Sender: FDA-Public Use
  Company Number: S06-UKI-03755-01

PATIENT
  Age: 52 Year
  Sex: Female

DRUGS (2)
  1. ESCITALOPRAM OXALATE [Suspect]
     Indication: DEPRESSION
     Dosage: 10 MG QD PO
     Route: 048
     Dates: start: 20060626, end: 20060627
  2. ATENOLOL [Concomitant]

REACTIONS (2)
  - PSYCHOTIC DISORDER [None]
  - SUICIDAL IDEATION [None]
